FAERS Safety Report 10015518 (Version 1)
Quarter: 2014Q1

REPORT INFORMATION
  Report Type: Spontaneous
  Country: CZ (occurrence: CZ)
  Receive Date: 20140317
  Receipt Date: 20140317
  Transmission Date: 20141002
  Serious: Yes (Other)
  Sender: FDA-Public Use
  Company Number: PHHY2014CZ028409

PATIENT
  Sex: Male

DRUGS (7)
  1. VALPROIC ACID [Suspect]
     Route: 064
  2. HEPARIN [Suspect]
     Route: 064
  3. AZATHIOPRINE [Suspect]
     Route: 064
  4. HYDROXYCHLOROQUINE [Suspect]
     Route: 064
  5. BETAMETHASONE [Suspect]
     Route: 064
  6. ASPIRIN [Suspect]
     Route: 064
  7. CORTICOSTEROIDS [Suspect]

REACTIONS (18)
  - Neonatal respiratory distress syndrome [Unknown]
  - Hypoxia [Unknown]
  - Leukopenia [Unknown]
  - Thrombocytopenia [Unknown]
  - C-reactive protein increased [Unknown]
  - Bronchopulmonary dysplasia [Unknown]
  - Neonatal cholestasis [Unknown]
  - Necrotising colitis [Unknown]
  - Hypothyroidism [Unknown]
  - Psychomotor hyperactivity [Unknown]
  - Inguinal hernia [Unknown]
  - Low birth weight baby [Unknown]
  - Premature baby [Unknown]
  - Foetal growth restriction [Unknown]
  - Immunosuppression [Unknown]
  - Pathological fracture [Unknown]
  - Meconium abnormal [Unknown]
  - Foetal exposure during pregnancy [Unknown]
